FAERS Safety Report 15901898 (Version 1)
Quarter: 2019Q1

REPORT INFORMATION
  Report Type: Spontaneous
  Country: US (occurrence: US)
  Receive Date: 20190110
  Receipt Date: 20190110
  Transmission Date: 20190417
  Serious: No
  Sender: FDA-Public Use
  Company Number: None

PATIENT
  Age: 72 Year
  Sex: Female

DRUGS (1)
  1. FORTEO [Suspect]
     Active Substance: TERIPARATIDE
     Route: 058
     Dates: start: 20181110, end: 20190104

REACTIONS (3)
  - Nausea [None]
  - Decreased appetite [None]
  - Syncope [None]

NARRATIVE: CASE EVENT DATE: 20190105
